FAERS Safety Report 8406904-7 (Version None)
Quarter: 2012Q2

REPORT INFORMATION
  Report Type: 
  Country: None (occurrence: None)
  Receive Date: 20120529
  Receipt Date: 20040127
  Transmission Date: 20120825
  Serious: Yes (Death, Hospitalization)
  Sender: FDA-Public Use
  Company Number: 02100-JPN-04-0020

PATIENT
  Age: 81 Year
  Sex: Male
  Weight: 50 kg

DRUGS (11)
  1. ASPIRIN [Concomitant]
  2. LASIX [Concomitant]
  3. ZANTAC [Concomitant]
  4. FAMOTIDINE [Concomitant]
  5. BUFFERIN [Concomitant]
  6. EPOGEN [Concomitant]
  7. CALTAN (PRECIPITATED CALCIUM CARBONATE) [Concomitant]
  8. PLETAL [Suspect]
     Indication: CEREBRAL INFARCTION
     Dosage: 100 MG, BID, ORAL
     Route: 048
     Dates: start: 20010601, end: 20031231
  9. AMIODARONE HCL [Suspect]
     Dosage: 200 MG, QD, ORAL
     Route: 048
     Dates: start: 20030301, end: 20031231
  10. THYRADIN (THYROID) [Concomitant]
  11. HEPARIN [Concomitant]

REACTIONS (16)
  - INTERSTITIAL LUNG DISEASE [None]
  - ATRIAL FIBRILLATION [None]
  - PLATELET COUNT DECREASED [None]
  - OPPORTUNISTIC INFECTION [None]
  - VENTRICULAR EXTRASYSTOLES [None]
  - PROCEDURAL HYPOTENSION [None]
  - PLEURAL EFFUSION [None]
  - THROMBOSIS [None]
  - CARDIAC FAILURE CONGESTIVE [None]
  - ANAEMIA [None]
  - ENTEROCOLITIS VIRAL [None]
  - HAEMODIALYSIS-INDUCED SYMPTOM [None]
  - CONJUNCTIVAL PALLOR [None]
  - PALPITATIONS [None]
  - PNEUMONITIS [None]
  - RESPIRATORY FAILURE [None]
